FAERS Safety Report 4458990-7 (Version None)
Quarter: 2004Q3

REPORT INFORMATION
  Report Type: 
  Country: None (occurrence: None)
  Receive Date: 20040923
  Receipt Date: 20040923
  Transmission Date: 20050211
  Serious: Yes (Life-Threatening, Hospitalization)
  Sender: FDA-Public Use
  Company Number: None

PATIENT
  Age: 50 Year
  Sex: Male
  Weight: 71 kg

DRUGS (3)
  1. ALLOPURINOL [Suspect]
     Indication: GOUT
     Dosage: 300 MG PO QD
     Route: 048
     Dates: start: 20040413, end: 20040427
  2. ALLOPURINOL [Suspect]
     Indication: HYPERURICAEMIA
     Dosage: 300 MG PO QD
     Route: 048
     Dates: start: 20040413, end: 20040427
  3. ATENOLOL [Concomitant]

REACTIONS (3)
  - BODY TEMPERATURE INCREASED [None]
  - FATIGUE [None]
  - RASH GENERALISED [None]
